FAERS Safety Report 18136277 (Version 1)
Quarter: 2020Q3

REPORT INFORMATION
  Report Type: Spontaneous
  Country: GB (occurrence: GB)
  Receive Date: 20200811
  Receipt Date: 20200811
  Transmission Date: 20201103
  Serious: Yes (Other)
  Sender: FDA-Public Use
  Company Number: GB-ASCEND THERAPEUTICS US, LLC-2088472

PATIENT
  Age: 53 Year
  Sex: Female

DRUGS (3)
  1. ESTROGEL [Suspect]
     Active Substance: ESTRADIOL
  2. ESTRODOSE (ESTRADIOL) (80 GRAM)?INDICATION FOR USE: HRT [Suspect]
     Active Substance: ESTRADIOL
     Route: 062
     Dates: start: 20200706, end: 20200716
  3. ESTROGEL [Suspect]
     Active Substance: ESTRADIOL
     Indication: HORMONE REPLACEMENT THERAPY
     Route: 062
     Dates: start: 20200706, end: 20200716

REACTIONS (3)
  - Product substitution issue [Unknown]
  - Drug ineffective [Unknown]
  - Menopausal symptoms [Recovered/Resolved with Sequelae]
